FAERS Safety Report 9438827 (Version 3)
Quarter: 2013Q3

REPORT INFORMATION
  Report Type: Spontaneous
  Country: US (occurrence: US)
  Receive Date: 20130802
  Receipt Date: 20130913
  Transmission Date: 20140515
  Serious: No
  Sender: FDA-Public Use
  Company Number: US-PFIZER INC-2013222315

PATIENT
  Age: 59 Year
  Sex: Male
  Weight: 99.77 kg

DRUGS (7)
  1. LYRICA [Suspect]
     Indication: NEUROPATHY PERIPHERAL
     Dosage: 100 MG, 3X/DAY
     Route: 048
     Dates: start: 201306, end: 201306
  2. LYRICA [Interacting]
     Indication: NEURALGIA
  3. LYRICA [Interacting]
     Indication: DIABETIC NEUROPATHY
  4. OMEPRAZOLE [Interacting]
     Indication: GASTROOESOPHAGEAL REFLUX DISEASE
     Dosage: 40 MG, 1X/DAY
  5. LEXAPRO [Interacting]
     Indication: SEROTONIN SYNDROME
     Dosage: 10 MG, 1X/DAY
  6. FELODIPINE [Interacting]
     Indication: HYPERTENSION
     Dosage: 2.5 MG, 1X/DAY
  7. AMBIEN [Interacting]
     Indication: SLEEP DISORDER
     Dosage: 5 MG, 1X/DAY

REACTIONS (4)
  - Drug interaction [Unknown]
  - Enuresis [Unknown]
  - Dry mouth [Unknown]
  - Urinary incontinence [Unknown]
